FAERS Safety Report 4475344-8 (Version None)
Quarter: 2004Q4

REPORT INFORMATION
  Report Type: 
  Country: None (occurrence: None)
  Receive Date: 20041014
  Receipt Date: 20041014
  Transmission Date: 20050328
  Serious: Yes (Other)
  Sender: FDA-Public Use
  Company Number: None

PATIENT
  Sex: Male
  Weight: 73.4827 kg

DRUGS (7)
  1. REMERON [Suspect]
     Indication: BIPOLAR I DISORDER
     Dosage: 45 MG QD
  2. REMERON [Suspect]
     Dosage: 45 MG QD
  3. NEURONTIN [Concomitant]
  4. CELEXA [Concomitant]
  5. KLONOPIN [Concomitant]
  6. CLONADINE [Concomitant]
  7. METHADONE HCL [Concomitant]

REACTIONS (1)
  - RASH MACULO-PAPULAR [None]
